FAERS Safety Report 17186016 (Version 1)
Quarter: 2019Q4

REPORT INFORMATION
  Report Type: Spontaneous
  Country: NL (occurrence: NL)
  Receive Date: 20191220
  Receipt Date: 20191220
  Transmission Date: 20200122
  Serious: Yes (Hospitalization)
  Sender: FDA-Public Use
  Company Number: NL-MYLANLABS-2019M1126845

PATIENT
  Age: 68 Year
  Sex: Female
  Weight: 77 kg

DRUGS (10)
  1. METOCLOPRAMIDE. [Concomitant]
     Active Substance: METOCLOPRAMIDE
     Dosage: GEBRUIK 10 MG ORAAL 3 X PER DAG ZONODIG BIJ MISSELIJKHEID
     Route: 048
  2. HYDROCHLOORTHIAZIDE [Concomitant]
     Active Substance: HYDROCHLOROTHIAZIDE
     Dosage: UNK
  3. BISOPROLOL [Concomitant]
     Active Substance: BISOPROLOL
     Dosage: 10 MG ORAAL 1 X PER DAG
     Route: 048
  4. METOCLOPRAMIDE. [Concomitant]
     Active Substance: METOCLOPRAMIDE
     Dosage: GEBRUIK 10 MG RECTAAL ZO NODIG 3 X PER DAG MISSELIJKHEID
     Route: 054
  5. SIMVASTATINE [Concomitant]
     Active Substance: SIMVASTATIN
     Dosage: GEBRUIK 40 MG ORAAL 1 X PER DAG
     Route: 048
  6. OXALIPLATIN. [Suspect]
     Active Substance: OXALIPLATIN
     Indication: OESOPHAGEAL SQUAMOUS CELL CARCINOMA METASTATIC
     Dosage: 1 DOSAGE FORM, Q3W 130MG/M2 1X PER 3 WEKEN IN COMBINATIE MET CAPECITABINE
     Route: 042
     Dates: start: 20190702
  7. SIMVASTATINE [Concomitant]
     Active Substance: SIMVASTATIN
     Dosage: UNK
  8. CAPECITABINE. [Concomitant]
     Active Substance: CAPECITABINE
     Dosage: 1800 MILLIGRAM, BID, 1800 MG ORAAL 2 X PER DAG
     Route: 048
  9. OMEPRAZOL                          /00661201/ [Concomitant]
     Active Substance: OMEPRAZOLE
     Dosage: GEBRUIK 20 MG ORAAL 1 X PER DAG
  10. MAGNESIUMHYDROXIDE [Concomitant]
     Dosage: GEBRUIK 724 MG ORAAL 3 X PER DAG ZO NODIG BIJ REFLUX
     Route: 048

REACTIONS (6)
  - Eyelid ptosis [Recovered/Resolved]
  - Stridor [Recovered/Resolved]
  - Oxygen saturation decreased [Recovered/Resolved]
  - Presyncope [Recovered/Resolved]
  - Muscular weakness [Recovered/Resolved]
  - Laryngospasm [Recovered/Resolved]

NARRATIVE: CASE EVENT DATE: 20190725
